FAERS Safety Report 15691333 (Version 1)
Quarter: 2018Q4

REPORT INFORMATION
  Report Type: Report from Study
  Country: CR (occurrence: CR)
  Receive Date: 20181205
  Receipt Date: 20181205
  Transmission Date: 20190205
  Serious: Yes (Death)
  Sender: FDA-Public Use
  Company Number: CR-SANIK-2018SA328424AA

PATIENT
  Age: 97 Year
  Sex: Female

DRUGS (1)
  1. CLOPIDOGREL BISULFATE. [Suspect]
     Active Substance: CLOPIDOGREL BISULFATE
     Indication: RENAL DISORDER
     Dosage: 75 MG, QD
     Route: 048

REACTIONS (2)
  - Death [Fatal]
  - Off label use [Unknown]
